FAERS Safety Report 21478091 (Version 1)
Quarter: 2022Q4

REPORT INFORMATION
  Report Type: Spontaneous
  Country: IT (occurrence: None)
  Receive Date: 20221019
  Receipt Date: 20221019
  Transmission Date: 20230112
  Serious: Yes (Other)
  Sender: FDA-Public Use
  Company Number: 2022A343116

PATIENT
  Age: 25 Year
  Sex: Male

DRUGS (4)
  1. QUETIAPINE [Suspect]
     Active Substance: QUETIAPINE
     Dosage: WOULD TAKE QUETIAPINE 300MG 3CP AT DINNER TIME (DRUG NOT IN FIXED THERAPY).300.0MG ONCE/SINGLE AD...
     Route: 048
     Dates: start: 20220831, end: 20220831
  2. LORAZEPAM [Concomitant]
     Active Substance: LORAZEPAM
     Route: 048
  3. MIRTAZAPINE [Concomitant]
     Active Substance: MIRTAZAPINE
     Route: 048
  4. TAVOR [Concomitant]
     Route: 048

REACTIONS (1)
  - Abdominal pain upper [Unknown]

NARRATIVE: CASE EVENT DATE: 20220831
